FAERS Safety Report 8228593-7 (Version None)
Quarter: 2012Q1

REPORT INFORMATION
  Report Type: 
  Country: None (occurrence: None)
  Receive Date: 20120322
  Receipt Date: 20110322
  Transmission Date: 20120608
  Serious: Yes (Other)
  Sender: FDA-Public Use
  Company Number: US-BRISTOL-MYERS SQUIBB COMPANY-15625882

PATIENT
  Age: 60 Year
  Sex: Male

DRUGS (3)
  1. ERBITUX [Suspect]
     Indication: COLORECTAL CANCER
     Dosage: ERBITUX THERAPY WAS INTERRUPTED AND DISCONTINUED, LOADING DOSE
     Dates: start: 20110314
  2. DECADRON [Concomitant]
     Indication: PREMEDICATION
  3. BENADRYL [Concomitant]
     Indication: PREMEDICATION

REACTIONS (1)
  - ANGINA PECTORIS [None]
